FAERS Safety Report 10461100 (Version 1)
Quarter: 2014Q3

REPORT INFORMATION
  Report Type: Spontaneous
  Country: CH (occurrence: CH)
  Receive Date: 20140918
  Receipt Date: 20140918
  Transmission Date: 20150326
  Serious: Yes (Other)
  Sender: FDA-Public Use
  Company Number: CH-BAYER-2014-138229

PATIENT
  Sex: Female

DRUGS (1)
  1. BETAFERON [Suspect]
     Active Substance: INTERFERON BETA-1B
     Indication: MULTIPLE SCLEROSIS
     Dosage: 250 ?G, QOD
     Route: 058
     Dates: start: 201103

REACTIONS (7)
  - Injection site induration [None]
  - Lipoatrophy [None]
  - Multiple sclerosis [None]
  - Muscular weakness [None]
  - Injection site erythema [None]
  - Walking disability [None]
  - Cognitive disorder [None]
